FAERS Safety Report 14893989 (Version 9)
Quarter: 2020Q1

REPORT INFORMATION
  Report Type: Report from Study
  Country: CO (occurrence: CO)
  Receive Date: 20180514
  Receipt Date: 20200302
  Transmission Date: 20200409
  Serious: Yes (Hospitalization, Other)
  Sender: FDA-Public Use
  Company Number: PHHY2018CO027528

PATIENT
  Age: 3 Year
  Sex: Female
  Weight: 18 kg

DRUGS (7)
  1. PREDNISOLONE. [Concomitant]
     Active Substance: PREDNISOLONE
     Indication: PRODUCT USED FOR UNKNOWN INDICATION
     Dosage: 5 MG, UNK
     Route: 065
  2. ILARIS [Suspect]
     Active Substance: CANAKINUMAB
     Dosage: UNK
     Route: 058
     Dates: start: 20190306, end: 20190306
  3. METHOTREXATE. [Concomitant]
     Active Substance: METHOTREXATE
     Indication: PRODUCT USED FOR UNKNOWN INDICATION
     Dosage: (EVERY 8 DAYS)
     Route: 065
  4. ILARIS [Suspect]
     Active Substance: CANAKINUMAB
     Indication: STILL^S DISEASE
     Dosage: 150 MG, QMO
     Route: 058
     Dates: start: 20170522
  5. ILARIS [Suspect]
     Active Substance: CANAKINUMAB
     Dosage: 56 MG, QMO
     Route: 058
     Dates: start: 20180418, end: 20180418
  6. ILARIS [Suspect]
     Active Substance: CANAKINUMAB
     Dosage: 60 MG, QMO
     Route: 058
  7. ILARIS [Suspect]
     Active Substance: CANAKINUMAB
     Dosage: UNK
     Route: 065
     Dates: start: 20180124

REACTIONS (34)
  - Gastritis [Unknown]
  - Pain in extremity [Recovering/Resolving]
  - Syncope [Unknown]
  - Hordeolum [Not Recovered/Not Resolved]
  - White blood cell count increased [Unknown]
  - Erythema [Recovered/Resolved]
  - Pyrexia [Recovering/Resolving]
  - Urinary tract infection [Recovered/Resolved]
  - Pharyngitis [Recovering/Resolving]
  - Alopecia [Unknown]
  - Oedema peripheral [Unknown]
  - Nausea [Unknown]
  - Haemophagocytic lymphohistiocytosis [Recovering/Resolving]
  - Asthenia [Unknown]
  - Inflammation [Recovered/Resolved]
  - Malaise [Recovering/Resolving]
  - Macule [Recovered/Resolved]
  - Inflammation [Recovered/Resolved]
  - Headache [Recovering/Resolving]
  - Arthralgia [Recovering/Resolving]
  - Tension [Unknown]
  - Influenza [Unknown]
  - Asthma [Unknown]
  - Cardiomegaly [Unknown]
  - Pallor [Unknown]
  - Dizziness [Unknown]
  - Cough [Unknown]
  - Pyrexia [Recovered/Resolved]
  - Depressed mood [Recovered/Resolved]
  - Abdominal pain upper [Recovered/Resolved]
  - Hyperhidrosis [Unknown]
  - Vomiting [Unknown]
  - Secretion discharge [Unknown]
  - Oropharyngeal pain [Unknown]

NARRATIVE: CASE EVENT DATE: 201711
